FAERS Safety Report 8962919 (Version 1)
Quarter: 2012Q4

REPORT INFORMATION
  Report Type: Spontaneous
  Country: GB (occurrence: None)
  Receive Date: 20121205
  Receipt Date: 20121205
  Transmission Date: 20130627
  Serious: Yes (Hospitalization)
  Sender: FDA-Public Use
  Company Number: TPA2012A09555

PATIENT
  Age: 65 Year
  Sex: Female

DRUGS (7)
  1. ADENURIC [Suspect]
     Indication: GOUT
     Dates: start: 201201, end: 201208
  2. ASCORBIC ACID [Concomitant]
  3. COLCHICINE [Concomitant]
  4. DICLOFENAC [Concomitant]
  5. DOXAZOSIN [Concomitant]
  6. MEBEVERINE [Concomitant]
  7. OMEPRAZOLE [Concomitant]

REACTIONS (1)
  - Systemic lupus erythematosus [None]
